FAERS Safety Report 7112969-5 (Version None)
Quarter: 2010Q4

REPORT INFORMATION
  Report Type: 
  Country: None (occurrence: None)
  Receive Date: 20101119
  Receipt Date: 20101112
  Transmission Date: 20110411
  Serious: Yes (Life-Threatening, Other)
  Sender: FDA-Public Use
  Company Number: DE-CELGENEUS-062-21880-09072085

PATIENT

DRUGS (16)
  1. REVLIMID [Suspect]
     Route: 048
     Dates: start: 20090629
  2. REVLIMID [Suspect]
     Route: 048
  3. BISOPROLOL FUMARATE [Concomitant]
     Indication: HYPERTENSION
     Route: 065
     Dates: start: 20040625
  4. NITRENDIPINE [Concomitant]
     Indication: HYPERTENSION
     Route: 065
     Dates: start: 20050101, end: 20071005
  5. CAPTOPRIL [Concomitant]
     Indication: HYPERTENSION
     Route: 048
     Dates: start: 20040625
  6. SIMVASTATIN [Concomitant]
     Route: 065
     Dates: start: 20040601
  7. DIGOXINE [Concomitant]
     Route: 065
     Dates: start: 20040601
  8. AMOXICILLIN AND CLAVULANATE POTASSIUM [Concomitant]
     Route: 065
  9. PANTOPRAZOLE SODIUM [Concomitant]
     Route: 065
  10. NORVASC [Concomitant]
     Route: 065
  11. ALLOPURINOL [Concomitant]
     Route: 065
  12. URALYT [Concomitant]
     Route: 065
  13. FRAGMIN [Concomitant]
     Route: 065
  14. RAMIPRIL [Concomitant]
     Route: 065
  15. IMESON [Concomitant]
     Route: 065
  16. MEROPENEM [Concomitant]
     Route: 065

REACTIONS (1)
  - THROMBOCYTOPENIA [None]
